FAERS Safety Report 10901088 (Version 3)
Quarter: 2015Q2

REPORT INFORMATION
  Report Type: Spontaneous
  Country: JP (occurrence: JP)
  Receive Date: 20150310
  Receipt Date: 20150416
  Transmission Date: 20150821
  Serious: Yes (Hospitalization)
  Sender: FDA-Public Use
  Company Number: JP-JNJFOC-20150305395

PATIENT
  Sex: Male

DRUGS (1)
  1. REMINYL [Suspect]
     Active Substance: GALANTAMINE
     Indication: DEMENTIA
     Dosage: 8 MG IN THE MORNING AND 4 MG IN THE NOON.
     Route: 048

REACTIONS (2)
  - Spondylitis [Unknown]
  - Incorrect dose administered [Unknown]
